FAERS Safety Report 17105002 (Version 2)
Quarter: 2021Q2

REPORT INFORMATION
  Report Type: Spontaneous
  Country: US (occurrence: US)
  Receive Date: 20191203
  Receipt Date: 20210428
  Transmission Date: 20210716
  Serious: Yes (Other)
  Sender: FDA-Public Use
  Company Number: US-PFIZER INC-2019516646

PATIENT
  Age: 62 Year
  Sex: Female

DRUGS (1)
  1. XELJANZ [Suspect]
     Active Substance: TOFACITINIB CITRATE
     Dosage: 5 MG, UNK

REACTIONS (6)
  - Staphylococcal infection [Unknown]
  - Sinus disorder [Unknown]
  - Hypoacusis [Unknown]
  - Viral infection [Unknown]
  - Herpes zoster [Unknown]
  - Rheumatoid arthritis [Unknown]
